FAERS Safety Report 19613087 (Version 1)
Quarter: 2021Q3

REPORT INFORMATION
  Report Type: Spontaneous
  Country: US (occurrence: US)
  Receive Date: 20210727
  Receipt Date: 20210727
  Transmission Date: 20211014
  Serious: No
  Sender: FDA-Public Use
  Company Number: US-MAYNE PHARMA-2021MYN000043

PATIENT
  Age: 63 Year
  Sex: Female

DRUGS (1)
  1. ESTAZOLAM. [Suspect]
     Active Substance: ESTAZOLAM
     Indication: INSOMNIA
     Dosage: 1 MG, 2 AT BEDTIME
     Route: 048
     Dates: start: 20210121, end: 20210123

REACTIONS (1)
  - Drug ineffective [Not Recovered/Not Resolved]

NARRATIVE: CASE EVENT DATE: 20210121
